FAERS Safety Report 17019253 (Version 3)
Quarter: 2020Q2

REPORT INFORMATION
  Report Type: Report from Study
  Country: DE (occurrence: DE)
  Receive Date: 20191112
  Receipt Date: 20200522
  Transmission Date: 20200713
  Serious: Yes (Hospitalization)
  Sender: FDA-Public Use
  Company Number: DE-PFIZER INC-2019477808

PATIENT
  Sex: Female
  Weight: 9.75 kg

DRUGS (1)
  1. SOMATROPIN. [Suspect]
     Active Substance: SOMATROPIN
     Indication: PRADER-WILLI SYNDROME
     Dosage: 0.3 MG, QD (5 MG/1.5 ML)
     Route: 058
     Dates: start: 20140905

REACTIONS (4)
  - Sleep apnoea syndrome [Recovered/Resolved]
  - Adenoidal hypertrophy [Recovered/Resolved]
  - Snoring [Recovered/Resolved]
  - Apnoea [Recovered/Resolved]

NARRATIVE: CASE EVENT DATE: 201504
